FAERS Safety Report 6677337-9 (Version None)
Quarter: 2010Q2

REPORT INFORMATION
  Report Type: 
  Country: None (occurrence: None)
  Receive Date: 20100412
  Receipt Date: 20100402
  Transmission Date: 20101027
  Serious: Yes (Disabling)
  Sender: FDA-Public Use
  Company Number: GXKR2010GB03892

PATIENT
  Age: 41 Year
  Sex: Male

DRUGS (4)
  1. DICLOFENAC (NGX) [Suspect]
     Indication: PAIN
     Route: 048
  2. ETANERCEPT [Suspect]
     Indication: ANKYLOSING SPONDYLITIS
     Dosage: 25 MG, QW2
     Route: 058
     Dates: start: 20060619, end: 20090801
  3. ETANERCEPT [Suspect]
     Dosage: 25 MG, QW2
     Route: 058
     Dates: start: 20100315
  4. ACETAMINOPHEN AND CODEINE PHOSPHATE [Concomitant]
     Indication: PAIN
     Dosage: 8 DF, QD
     Route: 048
     Dates: start: 20100301, end: 20100301

REACTIONS (6)
  - ANKYLOSING SPONDYLITIS [None]
  - CONDITION AGGRAVATED [None]
  - DEPRESSION SUICIDAL [None]
  - FIBROSIS [None]
  - LIVER FUNCTION TEST ABNORMAL [None]
  - NEUTROPENIA [None]
